FAERS Safety Report 6738361-0 (Version None)
Quarter: 2010Q2

REPORT INFORMATION
  Report Type: 
  Country: None (occurrence: None)
  Receive Date: 20100520
  Receipt Date: 20100507
  Transmission Date: 20101027
  Serious: Yes (Hospitalization)
  Sender: FDA-Public Use
  Company Number: DSA_43139_2010

PATIENT
  Age: 44 Year
  Sex: Male

DRUGS (6)
  1. WELLBUTRIN XL [Suspect]
     Indication: DRUG USE FOR UNKNOWN INDICATION
     Dosage: 150 MG QD ORAL
     Route: 048
  2. CARBAMAZEPINE [Suspect]
     Indication: DRUG USE FOR UNKNOWN INDICATION
     Dosage: 600 MG QD ORAL
     Route: 048
  3. METFORMIN HYDROCHLORIDE [Concomitant]
  4. INSULIN [Concomitant]
  5. SELOKEEN [Concomitant]
  6. GABAPENTIN [Concomitant]

REACTIONS (2)
  - DRUG INTERACTION [None]
  - EPILEPSY [None]
